FAERS Safety Report 7226831-0 (Version None)
Quarter: 2011Q1

REPORT INFORMATION
  Report Type: 
  Country: None (occurrence: None)
  Receive Date: 20110111
  Receipt Date: 20110111
  Transmission Date: 20110831
  Serious: Yes (Life-Threatening, Hospitalization)
  Sender: FDA-Public Use
  Company Number: None

PATIENT
  Age: 61 Year
  Sex: Male
  Weight: 126 kg

DRUGS (1)
  1. WARFARIN SODIUM [Suspect]
     Indication: ATRIAL FIBRILLATION

REACTIONS (6)
  - INTERNATIONAL NORMALISED RATIO INCREASED [None]
  - GINGIVAL BLEEDING [None]
  - MOUTH HAEMORRHAGE [None]
  - CONFUSIONAL STATE [None]
  - TOXICITY TO VARIOUS AGENTS [None]
  - ANAEMIA [None]
